FAERS Safety Report 6993086-1 (Version None)
Quarter: 2010Q3

REPORT INFORMATION
  Report Type: 
  Country: None (occurrence: None)
  Receive Date: 20100917
  Receipt Date: 20100510
  Transmission Date: 20110219
  Serious: No
  Sender: FDA-Public Use
  Company Number: US-ASTRAZENECA-2010SE21242

PATIENT
  Sex: Male

DRUGS (4)
  1. SEROQUEL [Suspect]
     Indication: INSOMNIA
     Route: 048
  2. SEROQUEL [Suspect]
     Indication: ANXIETY
     Route: 048
  3. PROZAC [Concomitant]
     Indication: DEPRESSION
     Route: 065
  4. SUBOXIN [Concomitant]
     Indication: DRUG DEPENDENCE
     Route: 065

REACTIONS (4)
  - ASTHENOPIA [None]
  - DYSARTHRIA [None]
  - FEELING ABNORMAL [None]
  - MIOSIS [None]
